FAERS Safety Report 10809158 (Version 1)
Quarter: 2015Q1

REPORT INFORMATION
  Report Type: Spontaneous
  Country: US (occurrence: None)
  Receive Date: 20150212
  Receipt Date: 20150212
  Transmission Date: 20150721
  Serious: Yes (Life-Threatening)
  Sender: FDA-Public Use
  Company Number: None

PATIENT
  Age: 68 Year
  Sex: Male
  Weight: 120.3 kg

DRUGS (1)
  1. PROTAMINE SULFATE. [Suspect]
     Active Substance: PROTAMINE SULFATE
     Indication: CORONARY ARTERY BYPASS
     Route: 042
     Dates: start: 20141014, end: 20141014

REACTIONS (2)
  - Haemodynamic instability [None]
  - Hypotension [None]

NARRATIVE: CASE EVENT DATE: 20141014
